FAERS Safety Report 6091782-4 (Version None)
Quarter: 2009Q1

REPORT INFORMATION
  Report Type: 
  Country: None (occurrence: None)
  Receive Date: 20090225
  Receipt Date: 20080613
  Transmission Date: 20090719
  Serious: No
  Sender: FDA-Public Use
  Company Number: A0732906A

PATIENT
  Age: 85 Year
  Sex: Male

DRUGS (4)
  1. VALTREX [Suspect]
     Dosage: 500MG TWICE PER DAY
     Route: 048
     Dates: start: 20080605, end: 20080607
  2. WARFARIN SODIUM [Concomitant]
  3. TERAZOSIN HCL [Concomitant]
  4. SIMVASTATIN [Concomitant]

REACTIONS (1)
  - ARTHRALGIA [None]
